FAERS Safety Report 15936022 (Version 1)
Quarter: 2019Q1

REPORT INFORMATION
  Report Type: Spontaneous
  Country: US (occurrence: US)
  Receive Date: 20190208
  Receipt Date: 20190208
  Transmission Date: 20190417
  Serious: Yes (Other)
  Sender: FDA-Public Use
  Company Number: US-ROCHE-2261335

PATIENT
  Sex: Male
  Weight: 93.07 kg

DRUGS (14)
  1. MONTELUKAST [Concomitant]
     Active Substance: MONTELUKAST SODIUM
     Indication: MAST CELL ACTIVATION SYNDROME
     Dosage: ONGOING: YES
     Route: 065
  2. SYMBICORD [Concomitant]
     Active Substance: BUDESONIDE\FORMOTEROL
     Indication: ASTHMA
     Dosage: 2 PUFFS; ONGOING: YES
     Route: 065
  3. QVAR [Concomitant]
     Active Substance: BECLOMETHASONE DIPROPIONATE
     Indication: ASTHMA
     Dosage: 1 PUFF; ONGOING: YES
     Route: 065
  4. RANITIDINE. [Concomitant]
     Active Substance: RANITIDINE
     Indication: GASTROOESOPHAGEAL REFLUX DISEASE
  5. LEVOCETIRIZIN [Concomitant]
     Active Substance: LEVOCETIRIZINE DIHYDROCHLORIDE
     Indication: MAST CELL ACTIVATION SYNDROME
     Dosage: ONGOING: YES
     Route: 065
  6. XOLAIR [Suspect]
     Active Substance: OMALIZUMAB
     Indication: RHINITIS ALLERGIC
  7. XOLAIR [Suspect]
     Active Substance: OMALIZUMAB
     Indication: MAST CELL ACTIVATION SYNDROME
     Dosage: 2, 150MG SHOTS; ONGOING: YES
     Route: 058
     Dates: start: 201901
  8. XOLAIR [Suspect]
     Active Substance: OMALIZUMAB
     Indication: ASTHMA
  9. XOLAIR [Suspect]
     Active Substance: OMALIZUMAB
     Indication: IDIOPATHIC URTICARIA
  10. CLONAZEPAM. [Suspect]
     Active Substance: CLONAZEPAM
     Indication: MAST CELL ACTIVATION SYNDROME
     Dosage: ONGOING: YES
     Route: 065
     Dates: start: 2016
  11. RANITIDINE. [Concomitant]
     Active Substance: RANITIDINE
     Indication: GASTROOESOPHAGEAL REFLUX DISEASE
     Dosage: ONGOING: YES
     Route: 065
  12. GLEEVEC [Concomitant]
     Active Substance: IMATINIB MESYLATE
     Indication: MAST CELL ACTIVATION SYNDROME
     Dosage: ONGOING: YES
     Route: 065
  13. DOXEPIN [Concomitant]
     Active Substance: DOXEPIN
     Indication: MAST CELL ACTIVATION SYNDROME
     Dosage: ONGOING: YES
     Route: 065
  14. CROMOLYN SODIUM. [Concomitant]
     Active Substance: CROMOLYN SODIUM
     Indication: MAST CELL ACTIVATION SYNDROME
     Dosage: BEFORE MEALS; ONGOING: YES
     Route: 065

REACTIONS (3)
  - Arthritis [Recovering/Resolving]
  - Intentional product use issue [Unknown]
  - Off label use [Unknown]

NARRATIVE: CASE EVENT DATE: 2018
